FAERS Safety Report 10012711 (Version 2)
Quarter: 2014Q1

REPORT INFORMATION
  Report Type: Spontaneous
  Country: NL (occurrence: NL)
  Receive Date: 20140314
  Receipt Date: 20140314
  Transmission Date: 20141002
  Serious: Yes (Hospitalization)
  Sender: FDA-Public Use
  Company Number: NL-ASTRAZENECA-2014SE15265

PATIENT
  Age: 905 Month
  Sex: Female

DRUGS (1)
  1. FULVESTRANT [Suspect]
     Indication: BREAST CANCER METASTATIC
     Route: 030
     Dates: start: 20140103

REACTIONS (2)
  - Adverse drug reaction [Unknown]
  - Pruritus [Unknown]
